FAERS Safety Report 11632211 (Version 1)
Quarter: 2015Q4

REPORT INFORMATION
  Report Type: Spontaneous
  Country: US (occurrence: None)
  Receive Date: 20151014
  Receipt Date: 20151014
  Transmission Date: 20160304
  Serious: Yes (Life-Threatening, Hospitalization, Disabling, Other)
  Sender: FDA-Public Use
  Company Number: None

PATIENT
  Age: 50 Year
  Sex: Female
  Weight: 92.53 kg

DRUGS (1)
  1. CLOZARIL [Suspect]
     Active Substance: CLOZAPINE
     Indication: HALLUCINATION, AUDITORY

REACTIONS (15)
  - Pain [None]
  - Choking [None]
  - Cardiac disorder [None]
  - Constipation [None]
  - Peripheral swelling [None]
  - Gastric disorder [None]
  - Hallucination, auditory [None]
  - Pneumonia aspiration [None]
  - Chest pain [None]
  - Muscle spasms [None]
  - Overweight [None]
  - Infection [None]
  - Tardive dyskinesia [None]
  - Glucose tolerance impaired [None]
  - Suicidal ideation [None]

NARRATIVE: CASE EVENT DATE: 20141213
